FAERS Safety Report 12619091 (Version 3)
Quarter: 2016Q4

REPORT INFORMATION
  Report Type: Report from Study
  Country: KR (occurrence: KR)
  Receive Date: 20160803
  Receipt Date: 20161219
  Transmission Date: 20170207
  Serious: Yes (Hospitalization)
  Sender: FDA-Public Use
  Company Number: KR-CELGENEUS-KOR-2016064137

PATIENT
  Age: 66 Year
  Sex: Male
  Weight: 66.9 kg

DRUGS (96)
  1. DEXAMETHASONE. [Suspect]
     Active Substance: DEXAMETHASONE
     Dosage: 40MG
     Route: 041
     Dates: start: 20160707, end: 20160707
  2. DEXAMETHASONE. [Suspect]
     Active Substance: DEXAMETHASONE
     Dosage: 40 MG
     Route: 048
     Dates: start: 20160628, end: 20160628
  3. DEXAMETHASONE. [Suspect]
     Active Substance: DEXAMETHASONE
     Dosage: 20 MG
     Route: 048
     Dates: start: 20160718, end: 20160721
  4. ATACAND [Concomitant]
     Active Substance: CANDESARTAN CILEXETIL
     Indication: HYPERTENSION
     Dosage: 16 MG
     Route: 048
     Dates: start: 20160521
  5. FURIX [Concomitant]
     Active Substance: FUROSEMIDE
     Indication: BENIGN PROSTATIC HYPERPLASIA
     Dosage: 80 MG
     Route: 048
     Dates: start: 20160516, end: 20160518
  6. HINECHOL [Concomitant]
     Indication: BENIGN PROSTATIC HYPERPLASIA
     Dosage: 3 TAB
     Route: 048
     Dates: start: 20160518, end: 20160519
  7. HUMALOG [Concomitant]
     Active Substance: INSULIN LISPRO
     Dosage: 10 IU
     Route: 058
     Dates: start: 20160623, end: 20160623
  8. LANTUS SOLOSTAR [Concomitant]
     Active Substance: INSULIN GLARGINE
     Indication: DIABETES MELLITUS
     Dosage: 1 PEN
     Route: 058
     Dates: start: 20160530, end: 20160530
  9. NEURONTIN [Concomitant]
     Active Substance: GABAPENTIN
     Indication: PAIN MANAGEMENT
     Dosage: 3 CAP
     Route: 048
     Dates: start: 20160515, end: 20160516
  10. ONON [Concomitant]
     Active Substance: PRANLUKAST
     Indication: PROPHYLAXIS
     Dosage: 4 CAP
     Route: 048
     Dates: start: 20160521, end: 20160530
  11. TRITTICO [Concomitant]
     Active Substance: TRAZODONE HYDROCHLORIDE
     Dosage: 24 MG
     Route: 048
     Dates: start: 20160624, end: 20160624
  12. TRAJENTA [Concomitant]
     Active Substance: LINAGLIPTIN
     Indication: DIABETES MELLITUS
     Dosage: 1 TAB
     Route: 048
     Dates: start: 20160608
  13. HEALTHCAL TAT [Concomitant]
     Indication: MINERAL SUPPLEMENTATION
     Dosage: 2 TAB
     Route: 048
     Dates: start: 20160609
  14. LEUKOCYTE POOR PACKED RBC [Concomitant]
     Dosage: 1 DF
     Route: 041
     Dates: start: 20160707, end: 20160707
  15. MUCOSOL [Concomitant]
     Active Substance: ACETYLCYSTEINE
     Dosage: 6 VIAL
     Route: 050
     Dates: start: 20160608, end: 20160608
  16. FLUNIL [Concomitant]
     Indication: PREMEDICATION
     Dosage: 4 ML
     Route: 041
     Dates: start: 20160617, end: 20160617
  17. DEXAMETHASONE. [Suspect]
     Active Substance: DEXAMETHASONE
     Dosage: 40 MG
     Route: 048
     Dates: start: 20160708, end: 20160708
  18. ATACAND [Concomitant]
     Active Substance: CANDESARTAN CILEXETIL
     Dosage: 16MG
     Route: 048
     Dates: start: 20160611
  19. AZEPTIN [Concomitant]
     Active Substance: AZELASTINE HYDROCHLORIDE
     Indication: CHRONIC OBSTRUCTIVE PULMONARY DISEASE
     Dosage: 2 TAB
     Route: 048
     Dates: start: 20160521, end: 201605
  20. ADALAT [Concomitant]
     Active Substance: NIFEDIPINE
     Indication: HYPERTENSION
     Dosage: 60 MG
     Route: 048
     Dates: start: 20160512, end: 20160512
  21. FURIX [Concomitant]
     Active Substance: FUROSEMIDE
     Dosage: 40 MG
     Route: 048
     Dates: start: 20160611
  22. KALIMATE [Concomitant]
     Active Substance: CALCIUM POLYSTYRENE SULFONATE
     Dosage: 330G
     Route: 048
     Dates: start: 20160511, end: 20160511
  23. K-CONTIN [Concomitant]
     Indication: PROPHYLAXIS
     Dosage: 6 TAB
     Route: 048
     Dates: start: 20160526, end: 20160526
  24. NORVASC [Concomitant]
     Active Substance: AMLODIPINE BESYLATE
     Indication: HYPERTENSION
     Dosage: 5 MG
     Route: 048
     Dates: start: 20160514
  25. NORVASC [Concomitant]
     Active Substance: AMLODIPINE BESYLATE
     Dosage: 5 MG
     Route: 048
     Dates: start: 20160611
  26. MAGMIL [Concomitant]
     Active Substance: MAGNESIUM HYDROXIDE
     Indication: CONSTIPATION
     Dosage: 6 TAB
     Route: 048
     Dates: start: 20160514
  27. MAGMIL [Concomitant]
     Active Substance: MAGNESIUM HYDROXIDE
     Dosage: 6 TAB
     Route: 048
     Dates: start: 20160611
  28. TRITTICO [Concomitant]
     Active Substance: TRAZODONE HYDROCHLORIDE
     Indication: INSOMNIA
     Dosage: 100 MG
     Route: 048
     Dates: start: 20160625
  29. VENTOLIN [Concomitant]
     Active Substance: ALBUTEROL SULFATE
     Indication: CHRONIC OBSTRUCTIVE PULMONARY DISEASE
     Dosage: 3 AMP
     Route: 055
     Dates: start: 20160511, end: 20160512
  30. PENIRAMIN [Concomitant]
     Dosage: 1AMP
     Route: 041
     Dates: start: 20160707, end: 20160707
  31. DIAMICRON MR [Concomitant]
     Active Substance: GLICLAZIDE
     Indication: DIABETES MELLITUS
     Dosage: 1 TAB
     Route: 048
     Dates: start: 20160608
  32. ATROPINE. [Concomitant]
     Active Substance: ATROPINE
     Indication: PREMEDICATION
     Dosage: 0.5 MG
     Route: 030
     Dates: start: 20160617, end: 20160617
  33. FURIX [Concomitant]
     Active Substance: FUROSEMIDE
     Indication: URINARY TRACT INFECTION
     Dosage: 40 MG
     Route: 048
     Dates: start: 20160519, end: 20160519
  34. HARNAL [Concomitant]
     Active Substance: TAMSULOSIN HYDROCHLORIDE
     Indication: BENIGN PROSTATIC HYPERPLASIA
     Dosage: 2 TAB
     Route: 048
     Dates: start: 20160516, end: 201605
  35. CRAVIT [Concomitant]
     Active Substance: LEVOFLOXACIN
     Indication: LUNG INFECTION
     Dosage: 750 MG
     Route: 048
     Dates: start: 20160511, end: 20160606
  36. SEPTRIN [Concomitant]
     Active Substance: SULFAMETHOXAZOLE\TRIMETHOPRIM
     Indication: LUNG INFECTION
     Dosage: 1 TAB
     Route: 048
     Dates: start: 20160511, end: 20160620
  37. RENALMIN [Concomitant]
     Indication: VITAMIN SUPPLEMENTATION
     Dosage: 1 TAB
     Route: 048
     Dates: start: 20160523
  38. DUPHALAC [Concomitant]
     Active Substance: LACTULOSE
     Indication: ENEMA ADMINISTRATION
     Dosage: 600 ML
     Route: 048
     Dates: start: 20160510, end: 20160510
  39. PENIRAMIN [Concomitant]
     Dosage: 1AMP
     Route: 041
     Dates: start: 20160704, end: 20160704
  40. TRAJENTA [Concomitant]
     Active Substance: LINAGLIPTIN
     Dosage: 5 MG
     Route: 048
     Dates: start: 20160611, end: 20160621
  41. DEXAMETHASONE. [Suspect]
     Active Substance: DEXAMETHASONE
     Dosage: 20 MG
     Route: 041
     Dates: start: 20160620, end: 20160623
  42. BANAN [Concomitant]
     Active Substance: CEFPODOXIME PROXETIL
     Indication: PROPHYLAXIS
     Dosage: 2 TAB
     Route: 048
     Dates: start: 20160530, end: 20160606
  43. FURIX [Concomitant]
     Active Substance: FUROSEMIDE
     Dosage: 20 MG
     Route: 048
     Dates: start: 20160521, end: 20160606
  44. GELMA [Concomitant]
     Indication: ABDOMINAL PAIN UPPER
     Dosage: 3 PKA
     Route: 048
     Dates: start: 20160526, end: 20160526
  45. CRAVIT [Concomitant]
     Active Substance: LEVOFLOXACIN
     Dosage: 750 ML
     Route: 048
     Dates: start: 20160625
  46. TARGIN PR [Concomitant]
     Indication: PAIN MANAGEMENT
     Dosage: 2 TAB
     Route: 048
     Dates: start: 20160511, end: 20160606
  47. HEALTHCAL TAT [Concomitant]
     Dosage: 2 TAB
     Route: 048
     Dates: start: 20160611
  48. MIDAZOLAM [Concomitant]
     Active Substance: MIDAZOLAM\MIDAZOLAM HYDROCHLORIDE
     Dosage: 6 VIAL
     Route: 050
     Dates: start: 20160608, end: 20160608
  49. MUCOSOL [Concomitant]
     Active Substance: ACETYLCYSTEINE
     Indication: PRODUCTIVE COUGH
     Dosage: 6 TAB
     Route: 048
     Dates: start: 20160616, end: 20160620
  50. ASPIRIN PROTECT [Concomitant]
     Active Substance: ASPIRIN
     Dosage: 100MG
     Route: 048
     Dates: start: 20160611
  51. BACTROBAN [Concomitant]
     Active Substance: MUPIROCIN\MUPIROCIN CALCIUM
     Indication: SKIN INFECTION
     Dosage: 10 G
     Route: 065
     Dates: start: 20160511, end: 20160511
  52. FURIX [Concomitant]
     Active Substance: FUROSEMIDE
     Dosage: 1 TAB
     Route: 048
     Dates: start: 20160609, end: 20160620
  53. HYTRINE [Concomitant]
     Indication: BENIGN PROSTATIC HYPERPLASIA
     Dosage: 2 TAB
     Route: 048
     Dates: start: 20160518, end: 20160519
  54. HYTRINE [Concomitant]
     Dosage: 1TAB
     Route: 048
     Dates: start: 20160521, end: 20160523
  55. HYTRINE [Concomitant]
     Dosage: 4 TAB
     Route: 048
     Dates: start: 20160611
  56. LASIX [Concomitant]
     Active Substance: FUROSEMIDE
     Indication: BENIGN PROSTATIC HYPERPLASIA
     Dosage: 40 MG
     Route: 041
     Dates: start: 20160517, end: 20160517
  57. MANNITOL. [Concomitant]
     Active Substance: MANNITOL
     Indication: ENEMA ADMINISTRATION
     Dosage: 1 BAG, 15%
     Route: 041
     Dates: start: 20160511, end: 20160511
  58. TRIDOL [Concomitant]
     Active Substance: TRAMADOL HYDROCHLORIDE
     Indication: PAIN MANAGEMENT
     Dosage: 1 AMP
     Route: 041
     Dates: start: 20160521, end: 20160521
  59. PENIRAMIN [Concomitant]
     Indication: BENIGN PROSTATIC HYPERPLASIA
     Dosage: 1AM
     Route: 041
     Dates: start: 20160609, end: 20160609
  60. REVLIMID [Suspect]
     Active Substance: LENALIDOMIDE
     Dosage: 5 MG
     Route: 048
     Dates: start: 20160620
  61. DEXAMETHASONE. [Suspect]
     Active Substance: DEXAMETHASONE
     Indication: PLASMA CELL MYELOMA
     Dosage: 40 MG
     Route: 041
     Dates: start: 20160510, end: 20160620
  62. CEFOLATAM [Concomitant]
     Active Substance: CEFOPERAZONE SODIUM\SULBACTAM SODIUM
     Indication: BENIGN PROSTATIC HYPERPLASIA
     Dosage: 2 VIAL
     Route: 041
     Dates: start: 20160520, end: 20160530
  63. HINECHOL [Concomitant]
     Dosage: 1.5 TAB
     Route: 048
     Dates: start: 20160521, end: 20160522
  64. SEPTRIN [Concomitant]
     Active Substance: SULFAMETHOXAZOLE\TRIMETHOPRIM
     Dosage: 1 TAB
     Route: 048
     Dates: start: 20160617
  65. RENALMIN [Concomitant]
     Dosage: 1 TAB
     Route: 048
     Dates: start: 20160611
  66. TRITTICO [Concomitant]
     Active Substance: TRAZODONE HYDROCHLORIDE
     Indication: DEPRESSION
     Dosage: 25 MG
     Route: 048
     Dates: start: 20160514, end: 20160606
  67. DUPHALAC [Concomitant]
     Active Substance: LACTULOSE
     Dosage: 1200 ML
     Route: 048
     Dates: start: 20160511, end: 20160511
  68. TANTUM [Concomitant]
     Active Substance: BENZYDAMINE HYDROCHLORIDE
     Indication: MOUTH ULCERATION
     Dosage: 200 ML
     Route: 065
     Dates: start: 20160516, end: 20160516
  69. DIAMICRON MR [Concomitant]
     Active Substance: GLICLAZIDE
     Dosage: 30 MG
     Route: 048
     Dates: start: 20160611
  70. EPOKINE [Concomitant]
     Dosage: 10000 IU
     Route: 058
     Dates: start: 20160616, end: 20160616
  71. LEUKOCYTE POOR PACKED RBC [Concomitant]
     Indication: ANAEMIA
     Dosage: 2 DF
     Route: 041
     Dates: start: 20160511, end: 20160526
  72. FLUNIL [Concomitant]
     Dosage: 6 VIAL
     Route: 050
     Dates: start: 20160608, end: 20160608
  73. REVLIMID [Suspect]
     Active Substance: LENALIDOMIDE
     Indication: PLASMA CELL MYELOMA
     Dosage: 5 MG
     Route: 048
     Dates: start: 20160512, end: 20160602
  74. ASPIRIN PROTECT [Concomitant]
     Active Substance: ASPIRIN
     Indication: ANTICOAGULANT THERAPY
     Dosage: 100 MG
     Route: 048
     Dates: start: 20160521
  75. AZEPTIN [Concomitant]
     Active Substance: AZELASTINE HYDROCHLORIDE
     Indication: RHINITIS ALLERGIC
     Dosage: 1 TAB
     Route: 048
     Dates: start: 20160620, end: 20160620
  76. HUMALOG [Concomitant]
     Active Substance: INSULIN LISPRO
     Indication: DIABETES MELLITUS
     Dosage: 1 PEN
     Route: 058
     Dates: start: 20160511, end: 20160511
  77. HYTRINE [Concomitant]
     Dosage: 2 TAB
     Route: 048
     Dates: start: 20160524
  78. LASIX [Concomitant]
     Active Substance: FUROSEMIDE
     Dosage: 20 MG
     Route: 041
     Dates: start: 20160511, end: 20160511
  79. POVIDONE [Concomitant]
     Active Substance: POVIDONE
     Indication: MOUTH ULCERATION
     Dosage: 100 ML
     Route: 065
     Dates: start: 20160519, end: 20160519
  80. PENIRAMIN [Concomitant]
     Indication: LUNG INFECTION
     Dosage: 1AMP
     Route: 041
     Dates: start: 20160511, end: 20160511
  81. PENIRAMIN [Concomitant]
     Dosage: 1AMP
     Route: 041
     Dates: start: 20160616, end: 20160616
  82. LEUKOCYTE POOR PACKED RBC [Concomitant]
     Dosage: 1 DF
     Route: 041
     Dates: start: 20160704, end: 20160704
  83. ATROPINE. [Concomitant]
     Active Substance: ATROPINE
     Dosage: 6 VIAL
     Route: 050
     Dates: start: 20160608, end: 20160608
  84. DEXAMETHASONE. [Suspect]
     Active Substance: DEXAMETHASONE
     Dosage: 20 MG
     Route: 041
     Dates: start: 20160510, end: 20160514
  85. DEXAMETHASONE. [Suspect]
     Active Substance: DEXAMETHASONE
     Dosage: 40 MG
     Route: 041
     Dates: start: 20160627, end: 20160627
  86. DEXAMETHASONE. [Suspect]
     Active Substance: DEXAMETHASONE
     Dosage: 40 MG
     Route: 041
     Dates: start: 20160630, end: 20160630
  87. AZEPTIN [Concomitant]
     Active Substance: AZELASTINE HYDROCHLORIDE
     Dosage: 1 MG
     Route: 048
     Dates: start: 20160623, end: 20160625
  88. ANORO ZI5 ELLIPTA [Concomitant]
     Indication: CHRONIC OBSTRUCTIVE PULMONARY DISEASE
     Dosage: 1
     Route: 055
     Dates: start: 20160530
  89. HUMALOG [Concomitant]
     Active Substance: INSULIN LISPRO
     Dosage: 4 IU
     Route: 058
     Dates: start: 20160624, end: 20160624
  90. KALIMATE [Concomitant]
     Active Substance: CALCIUM POLYSTYRENE SULFONATE
     Indication: ENEMA ADMINISTRATION
     Dosage: 150 G
     Route: 048
     Dates: start: 20160510, end: 20160510
  91. KLENZO [Concomitant]
     Indication: MOUTH ULCERATION
     Dosage: 1
     Route: 065
     Dates: start: 20160519, end: 20160519
  92. SODIUM BICARBONATE. [Concomitant]
     Active Substance: SODIUM BICARBONATE
     Indication: ELECTROLYTE IMBALANCE
     Dosage: 4 AMP
     Route: 041
     Dates: start: 20160510, end: 20160513
  93. PENIRAMIN [Concomitant]
     Indication: TRANSFUSION
     Dosage: 1AMP
     Route: 041
     Dates: start: 20160526, end: 20160526
  94. EPOKINE [Concomitant]
     Indication: ANAEMIA
     Dosage: 10000 IU
     Route: 058
     Dates: start: 20160609, end: 20160609
  95. LEUKOCYTE POOR PACKED RBC [Concomitant]
     Dosage: 2 DF
     Route: 041
     Dates: start: 20160616, end: 20160616
  96. MIDAZOLAM [Concomitant]
     Active Substance: MIDAZOLAM\MIDAZOLAM HYDROCHLORIDE
     Indication: PREMEDICATION
     Dosage: 4 MG
     Route: 041
     Dates: start: 20160617, end: 20160617

REACTIONS (3)
  - Insomnia [Not Recovered/Not Resolved]
  - Adrenal insufficiency [Recovered/Resolved]
  - Pneumonia streptococcal [Recovered/Resolved]

NARRATIVE: CASE EVENT DATE: 20160514
